FAERS Safety Report 13676506 (Version 1)
Quarter: 2017Q2

REPORT INFORMATION
  Report Type: Spontaneous
  Country: ES (occurrence: ES)
  Receive Date: 20170622
  Receipt Date: 20170622
  Transmission Date: 20170830
  Serious: Yes (Other)
  Sender: FDA-Public Use
  Company Number: ES-APOTEX-2017AP013239

PATIENT
  Age: 54 Year
  Sex: Female

DRUGS (1)
  1. LETROZOLE. [Suspect]
     Active Substance: LETROZOLE
     Indication: UTERINE CANCER
     Dosage: 2.5 MG, QD
     Route: 048

REACTIONS (4)
  - Tumour necrosis [Unknown]
  - Ovarian fibrosis [Unknown]
  - Blood bilirubin increased [Recovered/Resolved]
  - Tumour haemorrhage [Unknown]
